FAERS Safety Report 5579908-X (Version None)
Quarter: 2008Q1

REPORT INFORMATION
  Report Type: 
  Country: None (occurrence: None)
  Receive Date: 20080103
  Receipt Date: 20071221
  Transmission Date: 20080703
  Serious: Yes (Hospitalization, Other)
  Sender: FDA-Public Use
  Company Number: JP-BAYER-200710519BYL

PATIENT
  Age: 8 Year
  Sex: Male
  Weight: 24 kg

DRUGS (5)
  1. CIPROFLOXACIN [Suspect]
     Indication: PYREXIA
     Route: 048
     Dates: start: 20070717, end: 20070719
  2. BANAN [Concomitant]
     Indication: PYREXIA
     Route: 048
     Dates: start: 20070715, end: 20070715
  3. ERYTHROCIN [Concomitant]
     Indication: PYREXIA
     Route: 048
     Dates: start: 20070715, end: 20070715
  4. PRIMPERAN INJ [Concomitant]
     Indication: PYREXIA
     Route: 048
     Dates: start: 20070717, end: 20070719
  5. FLOMOX [Concomitant]
     Route: 048
     Dates: start: 20070718, end: 20070718

REACTIONS (3)
  - HEPATIC FUNCTION ABNORMAL [None]
  - PLATELET COUNT DECREASED [None]
  - WHITE BLOOD CELL COUNT DECREASED [None]
